FAERS Safety Report 6081533-1 (Version None)
Quarter: 2009Q1

REPORT INFORMATION
  Report Type: 
  Country: None (occurrence: None)
  Receive Date: 20090213
  Receipt Date: 20090129
  Transmission Date: 20090719
  Serious: Yes (Other)
  Sender: FDA-Public Use
  Company Number: 2009EN000030

PATIENT
  Age: 3 Month
  Sex: Female

DRUGS (1)
  1. ADAGEN [Suspect]
     Indication: ADENOSINE DEAMINASE DEFICIENCY

REACTIONS (10)
  - ADRENAL INSUFFICIENCY [None]
  - CENTRAL LINE INFECTION [None]
  - CONGENITAL ANOMALY [None]
  - DEAFNESS NEUROSENSORY [None]
  - DEVELOPMENTAL DELAY [None]
  - FAILURE TO THRIVE [None]
  - GENITALIA EXTERNAL AMBIGUOUS [None]
  - HYPOTHYROIDISM [None]
  - POST PROCEDURAL INFECTION [None]
  - RESPIRATORY TRACT INFECTION [None]
